FAERS Safety Report 8767577 (Version 3)
Quarter: 2012Q4

REPORT INFORMATION
  Report Type: 
  Country: DK (occurrence: DK)
  Receive Date: 20120904
  Receipt Date: 20121206
  Transmission Date: 20130627
  Serious: Yes (Congenital Anomaly, Other)
  Sender: FDA-Public Use
  Company Number: DK-PFIZER INC-2012212315

PATIENT

DRUGS (2)
  1. SALAZOPYRIN [Suspect]
     Indication: RHEUMATOID ARTHRITIS
     Dosage: 500 mg, 4x/day
     Route: 064
     Dates: start: 201103, end: 201205
  2. PLAQUENIL [Suspect]
     Indication: MALARIA PROPHYLAXIS
     Dosage: 200 mg, 1x/day
     Route: 064
     Dates: start: 201201, end: 201205

REACTIONS (3)
  - Maternal exposure during pregnancy [Recovered/Resolved]
  - Meningomyelocele [Not Recovered/Not Resolved]
  - Arnold-Chiari malformation [Not Recovered/Not Resolved]
